FAERS Safety Report 25194455 (Version 1)
Quarter: 2025Q2

REPORT INFORMATION
  Report Type: Spontaneous
  Country: US (occurrence: US)
  Receive Date: 20250414
  Receipt Date: 20250414
  Transmission Date: 20250717
  Serious: No
  Sender: MISSION
  Company Number: US-Mission Pharmacal Company-2174853

PATIENT

DRUGS (2)
  1. THIOLA EC [Suspect]
     Active Substance: TIOPRONIN
     Indication: Cystinuria
     Dates: start: 20150120
  2. generic tiopronin [Concomitant]

REACTIONS (1)
  - Rash [Unknown]
